FAERS Safety Report 8681521 (Version 5)
Quarter: 2012Q4

REPORT INFORMATION
  Report Type: Spontaneous
  Country: JP (occurrence: None)
  Receive Date: 20120709
  Receipt Date: 20121009
  Transmission Date: 20130627
  Serious: Yes (Life-Threatening, Hospitalization)
  Sender: FDA-Public Use
  Company Number: DSA_58278_2012

PATIENT
  Age: 57 Year
  Sex: Male

DRUGS (9)
  1. DILTIAZEM HYDROCHLORIDE [Suspect]
     Indication: PRODUCT USED FOR UNKNOWN INDICATION
     Dosage: (DF)
     Route: 048
     Dates: start: 201105
  2. CLARITIN [Suspect]
     Indication: SEASONAL ALLERGY
     Route: 048
     Dates: start: 2011
  3. FUROSEMIDE [Suspect]
     Indication: PRODUCT USED FOR UNKNOWN INDICATION
     Dosage: (DF)
     Dates: start: 201105
  4. AMIODARONE HYDROCHLORIDE [Suspect]
     Indication: TORSADE DE POINTES
     Dosage: (DF INTRAVENOUS (NOT OTHERWISE SPECIFIED))
     Route: 041
     Dates: start: 2011
  5. AMIODARONE HYDROCHLORIDE [Suspect]
     Indication: CARDIAC FAILURE
     Dosage: (DF INTRAVENOUS (NOT OTHERWISE SPECIFIED))
     Route: 041
     Dates: start: 2011
  6. AMIODARONE HYDROCHLORIDE [Suspect]
     Indication: ATRIAL FIBRILLATION
     Dosage: (DF INTRAVENOUS (NOT OTHERWISE SPECIFIED))
     Route: 041
     Dates: start: 2011
  7. AMIODARONE HYDROCHLORIDE [Suspect]
     Indication: VENTRICULAR FIBRILLATION
     Dosage: (DF INTRAVENOUS (NOT OTHERWISE SPECIFIED))
     Route: 041
     Dates: start: 2011
  8. CARPERITIDE [Concomitant]
  9. DOBUTREX [Concomitant]

REACTIONS (7)
  - Torsade de pointes [None]
  - Syncope [None]
  - Ventricular fibrillation [None]
  - Atrial fibrillation [None]
  - Tachycardia [None]
  - Ventricular extrasystoles [None]
  - Cardiac failure [None]
